FAERS Safety Report 4986967-1 (Version None)
Quarter: 2006Q2

REPORT INFORMATION
  Report Type: 
  Country: None (occurrence: None)
  Receive Date: 20060501
  Receipt Date: 20060419
  Transmission Date: 20061013
  Serious: Yes (Hospitalization)
  Sender: FDA-Public Use
  Company Number: DE-BRISTOL-MYERS SQUIBB COMPANY-13352323

PATIENT
  Age: 55 Year
  Sex: Female

DRUGS (4)
  1. CISPLATIN [Suspect]
     Indication: NON-SMALL CELL LUNG CANCER
     Route: 042
     Dates: start: 20060404, end: 20060404
  2. PACLITAXEL [Suspect]
     Indication: NON-SMALL CELL LUNG CANCER
     Route: 042
     Dates: start: 20060303, end: 20060303
  3. RADIATION THERAPY [Suspect]
     Indication: NON-SMALL CELL LUNG CANCER
     Dates: start: 20060327, end: 20060414
  4. VINORELBINE [Concomitant]
     Dates: start: 20060328, end: 20060404

REACTIONS (2)
  - LEUKOPENIA [None]
  - PULMONARY EMBOLISM [None]
